FAERS Safety Report 9760171 (Version 1)
Quarter: 2013Q4

REPORT INFORMATION
  Report Type: Spontaneous
  Country: US (occurrence: US)
  Receive Date: 20131216
  Receipt Date: 20131216
  Transmission Date: 20140711
  Serious: No
  Sender: FDA-Public Use
  Company Number: US-BAYER-2013-147213

PATIENT
  Age: 66 Year
  Sex: Male
  Weight: 118.82 kg

DRUGS (4)
  1. CIPRO [Suspect]
     Indication: BACTERIAL INFECTION
  2. SUTENT [Concomitant]
     Dosage: 25 MG, QD
     Route: 048
     Dates: start: 20130419
  3. SUTENT [Concomitant]
     Dosage: 37.5 MG, QD
     Route: 048
     Dates: start: 20130404, end: 20130418
  4. SUTENT [Concomitant]
     Dosage: 25 MG, QD
     Route: 048
     Dates: start: 20130221, end: 20130320

REACTIONS (1)
  - Drug ineffective [None]
